FAERS Safety Report 16635341 (Version 1)
Quarter: 2019Q3

REPORT INFORMATION
  Report Type: Spontaneous
  Country: US (occurrence: US)
  Receive Date: 20190726
  Receipt Date: 20190726
  Transmission Date: 20191004
  Serious: Yes (Other)
  Sender: FDA-Public Use
  Company Number: US-COLGATE PALMOLIVE COMPANY-20190701932

PATIENT
  Sex: Female

DRUGS (1)
  1. COLGATE CAVITY PROTECTION [Suspect]
     Active Substance: SODIUM FLUORIDE
     Indication: DENTAL DISORDER PROPHYLAXIS
     Dosage: UNKNOWN DOSE
     Dates: start: 2005, end: 20190715

REACTIONS (4)
  - Product contamination physical [Unknown]
  - Foreign body in gastrointestinal tract [Recovering/Resolving]
  - Tongue injury [Recovering/Resolving]
  - Gingival injury [Recovering/Resolving]

NARRATIVE: CASE EVENT DATE: 20190715
